FAERS Safety Report 4287917-6 (Version None)
Quarter: 2004Q1

REPORT INFORMATION
  Report Type: 
  Country: None (occurrence: None)
  Receive Date: 20040205
  Receipt Date: 20040115
  Transmission Date: 20041129
  Serious: Yes (Hospitalization)
  Sender: FDA-Public Use
  Company Number: USA040156659

PATIENT
  Age: 76 Year
  Sex: Female
  Weight: 52 kg

DRUGS (4)
  1. REGULAR INSULIN [Suspect]
     Indication: DIABETES MELLITUS
     Dates: start: 20030701
  2. NPH ILETIN II (PORK) [Suspect]
     Indication: DIABETES MELLITUS
     Dosage: 2 U/DAY
     Dates: start: 20030701
  3. HUMULIN R [Suspect]
     Indication: DIABETES MELLITUS
     Dates: start: 19830101
  4. NOVOLIN (INSULIN HUMAN INJECTION, ISOPHANE) [Concomitant]

REACTIONS (10)
  - BLOOD GLUCOSE FLUCTUATION [None]
  - CATARACT [None]
  - CELLULITIS [None]
  - DIABETES MELLITUS INSULIN-DEPENDENT [None]
  - FEELING ABNORMAL [None]
  - OEDEMA [None]
  - OEDEMA PERIPHERAL [None]
  - SKIN DISORDER [None]
  - SWELLING [None]
  - VISION BLURRED [None]
